FAERS Safety Report 5914729-7 (Version None)
Quarter: 2008Q4

REPORT INFORMATION
  Report Type: 
  Country: None (occurrence: None)
  Receive Date: 20081010
  Receipt Date: 20081003
  Transmission Date: 20090506
  Serious: Yes (Life-Threatening)
  Sender: FDA-Public Use
  Company Number: JP-JNJFOC-20081001171

PATIENT
  Sex: Female
  Weight: 46 kg

DRUGS (31)
  1. ITRIZOLE [Suspect]
     Route: 042
  2. ITRIZOLE [Suspect]
     Indication: DRUG USE FOR UNKNOWN INDICATION
     Route: 042
  3. MAGNESIUM OXIDE [Concomitant]
     Indication: CONSTIPATION
     Route: 048
  4. METFORMIN HCL [Concomitant]
     Indication: DIABETES MELLITUS
     Route: 048
  5. ZYLORIC [Concomitant]
     Indication: HYPERURICAEMIA
     Route: 048
  6. CALONAL [Concomitant]
     Indication: CHEST PAIN
     Route: 048
  7. LOXONIN [Concomitant]
     Indication: CHEST PAIN
     Route: 048
  8. MEDICON [Concomitant]
     Indication: PNEUMONIA
     Route: 048
  9. ASVERIN [Concomitant]
     Indication: PNEUMONIA
     Route: 048
  10. MUCOSTA [Concomitant]
     Indication: GASTRITIS
     Route: 048
  11. MAXIPIME [Concomitant]
     Indication: PNEUMONIA
     Route: 042
  12. AMIKACIN SULFATE [Concomitant]
     Indication: PNEUMONIA
     Route: 042
  13. NEUTROGIN [Concomitant]
     Indication: NEUTROPENIA
     Route: 058
  14. ROPION [Concomitant]
     Indication: CHEST PAIN
     Route: 042
  15. PENTAGIN [Concomitant]
     Indication: CHEST PAIN
     Route: 042
  16. ATARAX [Concomitant]
     Indication: INSOMNIA
     Route: 042
  17. KCL CORRECTIVE [Concomitant]
     Indication: HYPOKALAEMIA
     Route: 042
  18. MEYLON [Concomitant]
     Route: 042
  19. MEROPEN [Concomitant]
     Indication: PNEUMONIA
     Route: 042
  20. INOVAN [Concomitant]
     Indication: PERIPHERAL CIRCULATORY FAILURE
     Route: 042
  21. DIPRIVAN [Concomitant]
     Indication: SEDATIVE THERAPY
     Route: 042
  22. ELEMENMIC [Concomitant]
     Indication: NUTRITIONAL SUPPORT
     Dosage: 1 DF
     Route: 042
  23. FAMOTIDINE [Concomitant]
     Indication: GASTRITIS
     Route: 042
  24. HUMULIN R [Concomitant]
     Indication: DIABETES MELLITUS
     Route: 042
  25. LASIX [Concomitant]
     Indication: OEDEMA
     Route: 042
  26. URSO 250 [Concomitant]
     Indication: CHOLESTASIS
     Route: 048
  27. CRAVIT [Concomitant]
     Indication: PNEUMONIA
     Route: 048
  28. LAXOBERON [Concomitant]
     Indication: CONSTIPATION
     Route: 048
  29. MUCOSOLVAN L [Concomitant]
     Indication: PNEUMONIA
     Route: 048
  30. MUCODYNE [Concomitant]
     Indication: PNEUMONIA
     Route: 048
  31. GASTER D [Concomitant]
     Indication: GASTRITIS
     Route: 048

REACTIONS (3)
  - CATHETER RELATED COMPLICATION [None]
  - NEUTROPENIA [None]
  - RESPIRATORY DISORDER [None]
